FAERS Safety Report 6313957-9 (Version None)
Quarter: 2009Q3

REPORT INFORMATION
  Report Type: 
  Country: None (occurrence: None)
  Receive Date: 20090818
  Receipt Date: 20090811
  Transmission Date: 20100115
  Serious: Yes (Death, Life-Threatening, Hospitalization)
  Sender: FDA-Public Use
  Company Number: FR-WYE-G01573208

PATIENT
  Sex: Female
  Weight: 64 kg

DRUGS (4)
  1. TORISEL [Suspect]
     Indication: RENAL CANCER METASTATIC
     Route: 042
     Dates: start: 20080522, end: 20080522
  2. TORISEL [Suspect]
     Indication: METASTASES TO LIVER
  3. ROACCUTANE [Concomitant]
     Dosage: ONE DOSE-FORM ONCE DAILY FOR SEVERAL YEARS
     Route: 048
  4. POLARAMINE [Concomitant]
     Indication: PREMEDICATION
     Dosage: 1 TABLET OF 5 MG, 30 MINUTES BEFORE TORISEL INFUSION
     Route: 042
     Dates: start: 20080522, end: 20080522

REACTIONS (8)
  - ABDOMINAL PAIN [None]
  - ANAPHYLACTIC SHOCK [None]
  - BACK PAIN [None]
  - CHEST DISCOMFORT [None]
  - CHEST PAIN [None]
  - DISEASE PROGRESSION [None]
  - PULMONARY ARTERIAL HYPERTENSION [None]
  - PULMONARY MICROEMBOLI [None]
